FAERS Safety Report 23641080 (Version 3)
Quarter: 2025Q4

REPORT INFORMATION
  Report Type: Spontaneous
  Country: US (occurrence: US)
  Receive Date: 20240318
  Receipt Date: 20251121
  Transmission Date: 20260117
  Serious: Yes (Hospitalization)
  Sender: CATALYST PHARMA
  Company Number: US-CATALYST PHARMACEUTICALS, INC-US-CATA-24-00129

PATIENT
  Age: 90 Year
  Sex: Female
  Weight: 45.81 kg

DRUGS (27)
  1. FIRDAPSE [Suspect]
     Active Substance: AMIFAMPRIDINE PHOSPHATE
     Indication: Myasthenic syndrome
     Dosage: 80 MG (^TWO TABLETS IN THE MORNING, THREE TABLETS AT LUNCH, AND THREE TABLETS AT DINNER^)
     Route: 048
     Dates: start: 20190109
  2. FIRDAPSE [Suspect]
     Active Substance: AMIFAMPRIDINE PHOSPHATE
     Dosage: 3 TABLETS EVERY MORNING, 3 TABLETS AT NOON AND 2 TABLETS EVERY EVENING (8 TABLET A DAY)
     Route: 048
     Dates: start: 20190225
  3. FIRDAPSE [Suspect]
     Active Substance: AMIFAMPRIDINE PHOSPHATE
     Dosage: 3 TABLETS A DAY
     Route: 048
  4. MINERALS\VITAMINS [Concomitant]
     Active Substance: MINERALS\VITAMINS
     Indication: Macular degeneration
     Dosage: 1 DOSAGE FORM, BID
     Route: 065
  5. ARMOUR THYROID [Concomitant]
     Active Substance: THYROID, PORCINE
     Indication: Hypothyroidism
     Dosage: 60 MILLIGRAM, QD
     Route: 065
  6. AVASTIN [Concomitant]
     Active Substance: BEVACIZUMAB
     Indication: Macular degeneration
     Dosage: 1.25 MG EVERY 9 WEEKS
     Route: 065
  7. AZO [Concomitant]
     Active Substance: PHENAZOPYRIDINE HYDROCHLORIDE
     Indication: Prophylaxis urinary tract infection
     Dosage: 500 MILLIGRAM, QD
     Route: 065
  8. BIEST TESTOSTERONE [Concomitant]
     Indication: Hormone replacement therapy
     Dosage: 0.125 MG TWO TIMES A DAY/0.125 MG/0.5 MG TWICE DAILY
     Route: 065
  9. CANNABIDIOL\HERBALS [Concomitant]
     Active Substance: CANNABIDIOL\HERBALS
     Indication: Insomnia
     Dosage: 15-30 MG AS NEEDED
     Route: 065
  10. CEPHALEXIN [Concomitant]
     Active Substance: CEPHALEXIN
     Indication: Prophylaxis
     Dosage: 250 MILLIGRAM, QD
     Route: 065
  11. CEPHALEXIN [Concomitant]
     Active Substance: CEPHALEXIN
     Indication: Urinary tract infection
  12. CLARITIN [Concomitant]
     Active Substance: LORATADINE
     Indication: Hypersensitivity
     Dosage: 10 MILLIGRAM,DAILY
     Route: 065
  13. PRASTERONE [Concomitant]
     Active Substance: PRASTERONE
     Indication: Hormone replacement therapy
     Dosage: 18-60 MG DAILY
     Route: 065
  14. EYLEA [Concomitant]
     Active Substance: AFLIBERCEPT
     Indication: Macular degeneration
     Dosage: 2 MG EVERY 9 WEEKS
     Route: 065
  15. IRON [Concomitant]
     Active Substance: IRON
     Indication: Iron deficiency
     Dosage: 25 MILLIGRAM, QD
     Route: 065
  16. LASIX [Concomitant]
     Active Substance: FUROSEMIDE
     Indication: Fluid retention
     Dosage: 20 MILLIGRAM,DAILY
     Route: 065
  17. NIACINAMIDE [Concomitant]
     Active Substance: NIACINAMIDE
     Indication: Hypovitaminosis
     Dosage: 500 MILLIGRAM, DAILY
     Route: 065
  18. POTASSIUM GLUCONATE [Concomitant]
     Active Substance: POTASSIUM GLUCONATE
     Indication: Product used for unknown indication
     Dosage: 595 MG OR 99K DAILY
     Route: 065
  19. POTASSIUM GLUTAMATE [Concomitant]
     Indication: Product used for unknown indication
     Dosage: UNK, QD
     Route: 065
  20. POTASSIUM CHLORIDE [Concomitant]
     Active Substance: POTASSIUM CHLORIDE
     Indication: Hypokalaemia
     Dosage: 10 MILLIEQUIVALENT, DAILY
     Route: 065
  21. PROBIOTICS NOS [Concomitant]
     Active Substance: PROBIOTICS NOS
     Indication: Gastrointestinal disorder
     Dosage: 70 MILLIGRAM, QD
     Route: 065
  22. TYLENOL [Concomitant]
     Active Substance: ACETAMINOPHEN
     Indication: Back pain
     Dosage: 650 MG AS NEEDED
     Route: 065
  23. TRAMADOL [Concomitant]
     Active Substance: TRAMADOL
     Indication: Back pain
     Dosage: 25 MILLIGRAMD DAILY
     Route: 065
  24. VITAMIN C [Concomitant]
     Active Substance: ASCORBIC ACID
     Indication: Hypovitaminosis
     Dosage: 500 MILLIGRAM, QD
     Route: 065
  25. VITAMIN D [Concomitant]
     Active Substance: VITAMIN D NOS
     Indication: Hypovitaminosis
     Dosage: 125 MICROGRAM, QD
     Route: 065
  26. VITAMIN B COMPLEX [Concomitant]
     Active Substance: CYANOCOBALAMIN\DEXPANTHENOL\NIACINAMIDE\PYRIDOXINE HYDROCHLORIDE\RIBOFLAVIN 5^-PHOSPHATE SODIUM\THIA
     Indication: Hypovitaminosis
     Dosage: 1 DOSAGE FORM, QD
     Route: 065
  27. ZYRTEC [Concomitant]
     Active Substance: CETIRIZINE HYDROCHLORIDE
     Indication: Product used for unknown indication
     Dosage: 10 MILLIGRAM, QD
     Route: 065

REACTIONS (4)
  - Pneumonia [Recovering/Resolving]
  - COVID-19 [Recovering/Resolving]
  - Asthenia [Recovering/Resolving]
  - Back pain [Unknown]

NARRATIVE: CASE EVENT DATE: 20231201
